FAERS Safety Report 9998012 (Version 2)
Quarter: 2014Q2

REPORT INFORMATION
  Report Type: Spontaneous
  Country: US (occurrence: US)
  Receive Date: 20140311
  Receipt Date: 20140408
  Transmission Date: 20141212
  Serious: Yes (Life-Threatening)
  Sender: FDA-Public Use
  Company Number: US-009507513-1403USA004338

PATIENT
  Age: 52 Year
  Sex: Female
  Weight: 83.45 kg

DRUGS (2)
  1. DULERA [Suspect]
     Indication: ASTHMA
     Dosage: TWO PUFFS TWICE A DAY
     Route: 002
     Dates: start: 2011
  2. DULERA [Suspect]
     Indication: CHRONIC OBSTRUCTIVE PULMONARY DISEASE

REACTIONS (4)
  - Drug dose omission [Unknown]
  - Dyspnoea [Not Recovered/Not Resolved]
  - Nasopharyngitis [Not Recovered/Not Resolved]
  - Product container issue [Unknown]
